FAERS Safety Report 14603755 (Version 1)
Quarter: 2018Q1

REPORT INFORMATION
  Report Type: Spontaneous
  Country: CA (occurrence: CA)
  Receive Date: 20180305
  Receipt Date: 20180305
  Transmission Date: 20180509
  Serious: No
  Sender: FDA-Public Use
  Company Number: None

PATIENT
  Age: 29 Year
  Sex: Female
  Weight: 117 kg

DRUGS (1)
  1. RAN-CEFPROZIL 500MG 20 TABLETS [Suspect]
     Active Substance: CEFPROZIL
     Indication: BRONCHITIS
     Dosage: ?          QUANTITY:20 TABLET(S);?
     Route: 048
     Dates: start: 20180304, end: 20180305

REACTIONS (15)
  - Nausea [None]
  - Back pain [None]
  - Headache [None]
  - Dry throat [None]
  - Spinal pain [None]
  - Asthenia [None]
  - Dizziness [None]
  - Tremor [None]
  - Vomiting [None]
  - Diarrhoea [None]
  - Chills [None]
  - Abdominal distension [None]
  - Rhinorrhoea [None]
  - Abdominal pain [None]
  - Dyspnoea [None]

NARRATIVE: CASE EVENT DATE: 20180304
